FAERS Safety Report 9736997 (Version 2)
Quarter: 2015Q3

REPORT INFORMATION
  Report Type: Spontaneous
  Country: US (occurrence: US)
  Receive Date: 20131206
  Receipt Date: 20150804
  Transmission Date: 20151125
  Serious: No
  Sender: FDA-Public Use
  Company Number: US-GILEAD-2009-0023094

PATIENT
  Age: 45 Year
  Sex: Male
  Weight: 83.91 kg

DRUGS (14)
  1. LETAIRIS [Suspect]
     Active Substance: AMBRISENTAN
     Indication: PULMONARY ARTERIAL HYPERTENSION
     Route: 048
     Dates: start: 20090626
  2. TRACLEER [Concomitant]
     Active Substance: BOSENTAN
  3. PROVENTIL [Concomitant]
     Active Substance: ALBUTEROL
  4. ADVAIR HFA [Concomitant]
     Active Substance: FLUTICASONE PROPIONATE\SALMETEROL XINAFOATE
  5. AMITRIPTYLINE [Concomitant]
     Active Substance: AMITRIPTYLINE
  6. CLONIDINE. [Concomitant]
     Active Substance: CLONIDINE
  7. POLOXAMER [Concomitant]
     Active Substance: POLOXAMER
  8. REMODULIN [Concomitant]
     Active Substance: TREPROSTINIL
  9. GABAPENTIN. [Concomitant]
     Active Substance: GABAPENTIN
  10. KETAMINE [Concomitant]
     Active Substance: KETAMINE
  11. KETOPROFEN. [Concomitant]
     Active Substance: KETOPROFEN
  12. FUROSEMIDE. [Concomitant]
     Active Substance: FUROSEMIDE
  13. LECITHIN [Concomitant]
     Active Substance: LECITHIN
  14. OXYGEN. [Concomitant]
     Active Substance: OXYGEN

REACTIONS (2)
  - Weight decreased [Unknown]
  - Dry mouth [Unknown]
